FAERS Safety Report 22540051 (Version 1)
Quarter: 2023Q2

REPORT INFORMATION
  Report Type: Spontaneous
  Country: US (occurrence: None)
  Receive Date: 20230608
  Receipt Date: 20230608
  Transmission Date: 20230721
  Serious: Yes (Death)
  Sender: FDA-Public Use
  Company Number: None

PATIENT
  Sex: Male
  Weight: 60 kg

DRUGS (1)
  1. YESCARTA [Suspect]
     Active Substance: AXICABTAGENE CILOLEUCEL
     Indication: Diffuse large B-cell lymphoma
     Dates: start: 20230201

REACTIONS (18)
  - Lymphocyte adoptive therapy [None]
  - Tumour lysis syndrome [None]
  - Acute kidney injury [None]
  - Hypervolaemia [None]
  - Haemofiltration [None]
  - Haemofiltration [None]
  - Immune effector cell-associated neurotoxicity syndrome [None]
  - Immune effector cell-associated neurotoxicity syndrome [None]
  - Seizure [None]
  - Bacteraemia [None]
  - Systemic candida [None]
  - Adenovirus infection [None]
  - Viraemia [None]
  - Neutropenia [None]
  - Cytomegalovirus viraemia [None]
  - Septic shock [None]
  - Metabolic acidosis [None]
  - Respiratory acidosis [None]
